FAERS Safety Report 8099905-2 (Version None)
Quarter: 2012Q1

REPORT INFORMATION
  Report Type: 
  Country: None (occurrence: None)
  Receive Date: 20120131
  Receipt Date: 20120124
  Transmission Date: 20120608
  Serious: Yes (Hospitalization)
  Sender: FDA-Public Use
  Company Number: US-CELGENEUS-163-21880-11101952

PATIENT
  Sex: Male
  Weight: 95.794 kg

DRUGS (21)
  1. OMEPRAZOLE [Concomitant]
     Route: 065
  2. METOPROLOL TARTRATE [Concomitant]
     Route: 065
  3. TEMAZEPAM [Concomitant]
     Route: 065
  4. OXYCODONE HCL [Concomitant]
     Route: 065
  5. VITAMIN B6 [Concomitant]
     Route: 065
  6. LOVAZA [Concomitant]
     Route: 065
  7. PANTOPRAZOLE [Concomitant]
     Route: 065
  8. LORAZEPAM [Concomitant]
     Route: 065
  9. FINASTERIDE [Concomitant]
     Route: 065
  10. LOVAZA [Concomitant]
     Route: 065
  11. VITAMIN D [Concomitant]
     Route: 065
  12. DOXAZOSIN [Concomitant]
     Route: 065
  13. ALLOPURINOL [Concomitant]
     Route: 065
  14. VITAMIN-MINERAL COMPOUND TAB [Concomitant]
     Route: 065
  15. GABAPENTIN [Concomitant]
     Route: 065
  16. POLYETHYLENE [Concomitant]
     Route: 065
  17. AMITRIPTYLINE HCL [Concomitant]
     Route: 065
  18. VITAMIN B-12 [Concomitant]
     Route: 065
  19. OSTEO-BIFLEX [Concomitant]
     Route: 065
  20. WARFARIN SODIUM [Concomitant]
     Route: 065
  21. REVLIMID [Suspect]
     Indication: MULTIPLE MYELOMA
     Dosage: 15 MILLIGRAM
     Route: 048
     Dates: start: 20110314

REACTIONS (5)
  - PYREXIA [None]
  - LIVER DISORDER [None]
  - HYPOTENSION [None]
  - BLOOD CREATINE INCREASED [None]
  - MUSCULAR WEAKNESS [None]
